FAERS Safety Report 5209955-9 (Version None)
Quarter: 2006Q4

REPORT INFORMATION
  Report Type: 
  Country: None (occurrence: None)
  Receive Date: 20061128
  Receipt Date: 20060708
  Transmission Date: 20070319
  Serious: Yes (Other)
  Sender: FDA-Public Use
  Company Number: 2006085178

PATIENT
  Age: 75 Year
  Sex: Male
  Weight: 74.8435 kg

DRUGS (10)
  1. TIKOSYN [Suspect]
     Indication: ATRIAL FIBRILLATION
     Dosage: 500 MCG (250 MCG, BID), ORAL
     Route: 048
     Dates: start: 20060703
  2. SOTALOL HCL [Concomitant]
  3. HYDROCODONE BITARTRATE [Concomitant]
  4. NEXIUM [Concomitant]
  5. FUROSEMIDE [Concomitant]
  6. ASPIRIN [Concomitant]
  7. IMDUR [Concomitant]
  8. WARFARIN SODIUM [Concomitant]
  9. DIOVAN [Concomitant]
  10. LIPITOR [Concomitant]

REACTIONS (1)
  - CHEST PAIN [None]
